FAERS Safety Report 4499128-X (Version None)
Quarter: 2004Q4

REPORT INFORMATION
  Report Type: 
  Country: None (occurrence: None)
  Receive Date: 20041111
  Receipt Date: 20041105
  Transmission Date: 20050328
  Serious: Yes (Hospitalization)
  Sender: FDA-Public Use
  Company Number: US-JNJFOC-20041101783

PATIENT
  Sex: Female

DRUGS (12)
  1. DURAGESIC [Suspect]
     Indication: PAIN
     Route: 062
     Dates: start: 20041021, end: 20041027
  2. DARVOCET-N 100 [Suspect]
     Route: 049
     Dates: start: 20041021, end: 20041027
  3. DARVOCET-N 100 [Suspect]
     Indication: PAIN
     Route: 049
     Dates: start: 20041021, end: 20041027
  4. DILAUDID [Suspect]
     Indication: PAIN
     Route: 049
     Dates: start: 20041021, end: 20041027
  5. XYOTAX [Concomitant]
     Route: 042
     Dates: start: 20040618, end: 20041013
  6. XYOTAX [Concomitant]
     Indication: OVARIAN CANCER
     Route: 042
     Dates: start: 20040618, end: 20041013
  7. CARBOPLATIN [Concomitant]
     Indication: OVARIAN CANCER
     Route: 042
     Dates: start: 20040618, end: 20041013
  8. SYNTHROID [Concomitant]
  9. VASOTEC [Concomitant]
  10. MAGNESIUM OXIDE [Concomitant]
  11. ZOFRAN [Concomitant]
  12. ATIVAN [Concomitant]

REACTIONS (2)
  - ILEUS PARALYTIC [None]
  - METASTASES TO BLADDER [None]
